FAERS Safety Report 18238399 (Version 1)
Quarter: 2020Q3

REPORT INFORMATION
  Report Type: Spontaneous
  Country: DK (occurrence: DK)
  Receive Date: 20200907
  Receipt Date: 20200907
  Transmission Date: 20201103
  Serious: Yes (Other)
  Sender: FDA-Public Use
  Company Number: NVSC2020DK230052

PATIENT
  Sex: Male

DRUGS (2)
  1. VIBEDEN [Suspect]
     Active Substance: HYDROXOCOBALAMIN
     Indication: CROHN^S DISEASE
     Dosage: UNK
     Route: 065
  2. VIBEDEN [Suspect]
     Active Substance: HYDROXOCOBALAMIN
     Dosage: UNK
     Route: 065

REACTIONS (5)
  - Headache [Unknown]
  - Loss of consciousness [Unknown]
  - Tenderness [Unknown]
  - Chills [Recovered/Resolved]
  - Fatigue [Unknown]
